FAERS Safety Report 6226494-7 (Version None)
Quarter: 2009Q2

REPORT INFORMATION
  Report Type: 
  Country: None (occurrence: None)
  Receive Date: 20090612
  Receipt Date: 20090601
  Transmission Date: 20091009
  Serious: Yes (Hospitalization)
  Sender: FDA-Public Use
  Company Number: JP-PFIZER INC-2009163729

PATIENT
  Age: 62 Year

DRUGS (10)
  1. AMLODIPINE BESYLATE [Suspect]
     Indication: HYPERTENSION
     Dosage: 5 MG, UNK
     Route: 048
     Dates: start: 20071119, end: 20081028
  2. AMLODIPINE BESYLATE [Suspect]
     Dosage: 5 MG, UNK
     Route: 048
     Dates: start: 20070210, end: 20070224
  3. AMLODIPINE BESYLATE [Suspect]
     Dosage: 2.5 MG, UNK
     Route: 048
     Dates: start: 20060912, end: 20060926
  4. AMLODIPINE BESYLATE [Suspect]
     Dosage: UNK MG, UNK
  5. VALSARTAN [Suspect]
     Indication: HYPERTENSION
     Dosage: 80 MG, UNK
     Route: 048
     Dates: start: 20071217, end: 20081028
  6. VALSARTAN [Suspect]
     Dosage: 80 MG, UNK
     Route: 048
     Dates: start: 20070121, end: 20070224
  7. VALSARTAN [Suspect]
     Dosage: 80 MG, UNK
     Route: 048
     Dates: start: 20060812, end: 20060926
  8. ZITHROMAX [Concomitant]
     Dosage: UNK
     Route: 048
     Dates: start: 20081026
  9. DASEN [Concomitant]
     Dosage: UNK
     Route: 048
     Dates: start: 20081026
  10. VOLTAREN [Concomitant]
     Dosage: UNK
     Dates: start: 20081026

REACTIONS (1)
  - AGRANULOCYTOSIS [None]
